FAERS Safety Report 13296310 (Version 3)
Quarter: 2017Q2

REPORT INFORMATION
  Report Type: Spontaneous
  Country: US (occurrence: US)
  Receive Date: 20170304
  Receipt Date: 20170515
  Transmission Date: 20170830
  Serious: No
  Sender: FDA-Public Use
  Company Number: US-SHIRE-US201704688

PATIENT
  Age: 65 Year
  Sex: Female
  Weight: 44.9 kg

DRUGS (1)
  1. XIIDRA [Suspect]
     Active Substance: LIFITEGRAST
     Indication: DRY EYE
     Dosage: 1 GTT, (EACH EYE) 2X/DAY:BID
     Route: 047
     Dates: start: 20170228

REACTIONS (6)
  - Instillation site discharge [Unknown]
  - Drug ineffective [Unknown]
  - Instillation site lacrimation [Unknown]
  - Product quality issue [Unknown]
  - Instillation site pain [Not Recovered/Not Resolved]
  - Vision blurred [Unknown]

NARRATIVE: CASE EVENT DATE: 20170228
